FAERS Safety Report 10546013 (Version 2)
Quarter: 2014Q4

REPORT INFORMATION
  Report Type: Spontaneous
  Country: GB (occurrence: GB)
  Receive Date: 20141027
  Receipt Date: 20141120
  Transmission Date: 20150529
  Serious: Yes (Other)
  Sender: FDA-Public Use
  Company Number: GB-009507513-1410GBR010487

PATIENT
  Age: 25 Year
  Sex: Female
  Weight: 58.6 kg

DRUGS (1)
  1. NEXPLANON [Suspect]
     Active Substance: ETONOGESTREL
     Indication: CONTRACEPTION
     Dosage: UNK
     Route: 058
     Dates: start: 20130215

REACTIONS (11)
  - Implant site irritation [Not Recovered/Not Resolved]
  - Scar [Not Recovered/Not Resolved]
  - Rash macular [Not Recovered/Not Resolved]
  - Skin disorder [Not Recovered/Not Resolved]
  - Implant site pain [Recovered/Resolved with Sequelae]
  - Injection site pruritus [Not Recovered/Not Resolved]
  - Device difficult to use [Unknown]
  - Weight decreased [Recovering/Resolving]
  - Product substitution issue [Unknown]
  - Implant site swelling [Not Recovered/Not Resolved]
  - Rash [Not Recovered/Not Resolved]
